FAERS Safety Report 8503048 (Version 4)
Quarter: 2012Q4

REPORT INFORMATION
  Report Type: Report from Study
  Country: US (occurrence: US)
  Receive Date: 20120411
  Receipt Date: 20120912
  Transmission Date: 20130627
  Serious: Yes (Other)
  Sender: FDA-Public Use
  Company Number: US-JNJFOC-20120401300

PATIENT
  Age: 20 Year
  Sex: Female
  Weight: 60.69 kg

DRUGS (4)
  1. INFLIXIMAB, RECOMBINANT [Suspect]
     Indication: INFLAMMATORY BOWEL DISEASE
     Route: 042
     Dates: start: 20070506
  2. YAZ [Concomitant]
  3. MOMETASONE [Concomitant]
  4. VITAMIN D [Concomitant]

REACTIONS (1)
  - Papilloma viral infection [Recovered/Resolved with Sequelae]
